FAERS Safety Report 21108514 (Version 2)
Quarter: 2025Q2

REPORT INFORMATION
  Report Type: Spontaneous
  Country: FR (occurrence: FR)
  Receive Date: 20220721
  Receipt Date: 20250605
  Transmission Date: 20250717
  Serious: Yes (Hospitalization, Other)
  Sender: AUROBINDO
  Company Number: FR-Accord-268723

PATIENT
  Age: 72 Year
  Sex: Male

DRUGS (5)
  1. GEMCITABINE [Suspect]
     Active Substance: GEMCITABINE
     Indication: Diffuse large B-cell lymphoma stage II
     Route: 065
  2. OXALIPLATIN [Suspect]
     Active Substance: OXALIPLATIN
     Indication: Diffuse large B-cell lymphoma stage II
     Route: 065
  3. EPCORITAMAB [Suspect]
     Active Substance: EPCORITAMAB
     Indication: Diffuse large B-cell lymphoma stage II
     Dosage: 24 MILLIGRAM, EVERY WEEK (FULL DOSE)
     Route: 058
     Dates: start: 20220624
  4. EPCORITAMAB [Suspect]
     Active Substance: EPCORITAMAB
     Route: 058
  5. EPCORITAMAB [Suspect]
     Active Substance: EPCORITAMAB
     Route: 058

REACTIONS (2)
  - Cytokine release syndrome [Not Recovered/Not Resolved]
  - Off label use [Unknown]

NARRATIVE: CASE EVENT DATE: 20220624
